FAERS Safety Report 12351146 (Version 1)
Quarter: 2016Q2

REPORT INFORMATION
  Report Type: Spontaneous
  Country: US (occurrence: None)
  Receive Date: 20160509
  Receipt Date: 20160509
  Transmission Date: 20160815
  Serious: Yes (Other)
  Sender: FDA-Public Use
  Company Number: None

PATIENT
  Age: 25 Year
  Sex: Male
  Weight: 69.4 kg

DRUGS (2)
  1. WALGREENS STERILE ADVANCE RELIEF EYE DROPS [Suspect]
     Active Substance: DEXTRAN 70\POLYETHYLENE GLYCOL 400\POVIDONE\TETRAHYDROZOLINE HYDROCHLORIDE
  2. FISH OIL [Concomitant]
     Active Substance: FISH OIL

REACTIONS (6)
  - Product contamination physical [None]
  - Superficial injury of eye [None]
  - Injury corneal [None]
  - Eye infection [None]
  - Foreign body in eye [None]
  - Product package associated injury [None]

NARRATIVE: CASE EVENT DATE: 20160208
